FAERS Safety Report 9771839 (Version 1)
Quarter: 2013Q3

REPORT INFORMATION
  Report Type: Spontaneous
  Country: US (occurrence: None)
  Receive Date: 20130926
  Receipt Date: 20130926
  Transmission Date: 20140515
  Serious: Yes (Hospitalization, Other)
  Sender: FDA-Public Use
  Company Number: ACO_21727_2011

PATIENT
  Age: 47 Year
  Sex: Female

DRUGS (11)
  1. AMPYRA (DALFAMPRIDINE) TABLET, 10MG [Suspect]
     Indication: MULTIPLE SCLEROSIS
     Route: 048
     Dates: start: 20101110, end: 20110202
  2. BACLOFEN (BACLOFEN) [Concomitant]
  3. COPAXONE (GLATIRAMER ACETATE) [Concomitant]
  4. GABAPENTIN (GABAPENTIN) [Concomitant]
  5. MODAFINIL (MODAFINIL) [Concomitant]
  6. VESICARE (SOLIFENACIN SUCCINATE) [Concomitant]
  7. CITALOPRAM [Concomitant]
  8. FLUTICASONE (FLUTICASONE PROPIONATE) [Concomitant]
  9. DETROL LA (TOLTERODINE L-TARTRATE) [Concomitant]
  10. ACTONEL (RISEDRONATE SODIUM) [Concomitant]
  11. CLONAZEPAM (CLONAZEPAM) (CLONAZEPAM) [Concomitant]

REACTIONS (3)
  - Lower limb fracture [None]
  - Fall [None]
  - Multiple sclerosis relapse [None]
